FAERS Safety Report 6354590-2 (Version None)
Quarter: 2009Q3

REPORT INFORMATION
  Report Type: 
  Country: None (occurrence: None)
  Receive Date: 20090914
  Receipt Date: 20090901
  Transmission Date: 20100115
  Serious: Yes (Other)
  Sender: FDA-Public Use
  Company Number: US-PFIZER INC-2009265393

PATIENT
  Sex: Female
  Weight: 68.027 kg

DRUGS (10)
  1. CHANTIX [Suspect]
     Indication: SMOKING CESSATION THERAPY
     Dosage: 0.5 MG, 1X/DAY
     Dates: start: 20090829
  2. AMLODIPINE BESYLATE [Concomitant]
     Indication: HYPERTENSION
     Dosage: 5 MG, UNK
  3. ATENOLOL [Concomitant]
     Indication: HYPERTENSION
     Dosage: 50 MG, UNK
  4. SPIRIVA [Concomitant]
     Dosage: UNK
  5. FLOVENT [Concomitant]
     Dosage: UNK
  6. COMBIVENT [Concomitant]
     Dosage: UNK
  7. AMITRIPTYLINE HYDROCHLORIDE [Concomitant]
     Dosage: 25 MG, UNK
  8. CITALOPRAM [Concomitant]
     Dosage: 10 MG, UNK
  9. SIMVASTATIN [Concomitant]
     Dosage: UNK
  10. CLONAZEPAM [Concomitant]
     Dosage: 1 MG, UNK

REACTIONS (1)
  - IMPAIRED DRIVING ABILITY [None]
